FAERS Safety Report 10441303 (Version 2)
Quarter: 2014Q3

REPORT INFORMATION
  Report Type: Spontaneous
  Country: CA (occurrence: CA)
  Receive Date: 20140909
  Receipt Date: 20140909
  Transmission Date: 20150326
  Serious: Yes (Other)
  Sender: FDA-Public Use
  Company Number: CA-ASTRAZENECA-2014SE45694

PATIENT
  Age: 57 Year
  Sex: Male

DRUGS (6)
  1. BRILINTA [Suspect]
     Active Substance: TICAGRELOR
     Indication: ANTIPLATELET THERAPY
     Route: 048
  2. BRILINTA [Suspect]
     Active Substance: TICAGRELOR
     Indication: ANTIPLATELET THERAPY
     Dosage: IN THE MORNING AND IN THE EVENING
     Route: 048
     Dates: end: 20140724
  3. ZOPICLONE [Concomitant]
     Active Substance: ZOPICLONE
  4. VALSARTAN. [Concomitant]
     Active Substance: VALSARTAN
  5. BRILINTA [Suspect]
     Active Substance: TICAGRELOR
     Indication: ANTIPLATELET THERAPY
     Dosage: IN THE EVENING
     Route: 048
  6. ATORVASTATIN [Concomitant]
     Active Substance: ATORVASTATIN
     Dates: end: 20140724

REACTIONS (21)
  - Fatigue [Unknown]
  - Headache [Unknown]
  - Joint swelling [Unknown]
  - Hyperhidrosis [Unknown]
  - Adverse event [Unknown]
  - Memory impairment [Unknown]
  - Haemorrhage [Unknown]
  - Confusional state [Unknown]
  - Oedema peripheral [Unknown]
  - Dizziness [Unknown]
  - Musculoskeletal stiffness [Unknown]
  - Anxiety [Unknown]
  - Chest discomfort [Unknown]
  - Cough [Unknown]
  - Depression [Unknown]
  - Paraesthesia [Unknown]
  - Appetite disorder [Unknown]
  - Disorientation [Unknown]
  - Abdominal pain upper [Unknown]
  - Pain [Unknown]
  - Blood urine present [Recovered/Resolved]

NARRATIVE: CASE EVENT DATE: 2014
